FAERS Safety Report 10497329 (Version 1)
Quarter: 2014Q4

REPORT INFORMATION
  Report Type: Spontaneous
  Country: US (occurrence: US)
  Receive Date: 20141006
  Receipt Date: 20141006
  Transmission Date: 20150528
  Serious: No
  Sender: FDA-Public Use
  Company Number: US-AMGEN INC.-USASP2014074009

PATIENT
  Age: 28 Year
  Sex: Female

DRUGS (1)
  1. ENBREL [Suspect]
     Active Substance: ETANERCEPT
     Indication: MOUTH ULCERATION
     Dosage: 50 MG, UNK
     Route: 065
     Dates: start: 2013, end: 201409

REACTIONS (1)
  - Mouth ulceration [Not Recovered/Not Resolved]

NARRATIVE: CASE EVENT DATE: 201401
